FAERS Safety Report 12944814 (Version 1)
Quarter: 2016Q4

REPORT INFORMATION
  Report Type: Spontaneous
  Country: US (occurrence: US)
  Receive Date: 20161115
  Receipt Date: 20161115
  Transmission Date: 20170207
  Serious: Yes (Other)
  Sender: FDA-Public Use
  Company Number: None

PATIENT
  Age: 60 Year
  Sex: Male
  Weight: 99 kg

DRUGS (1)
  1. SUCCINYLCHOLINE 140MG/7 ML PHARMEDIUM [Suspect]
     Active Substance: SUCCINYLCHOLINE
     Dosage: ?          OTHER FREQUENCY:ONCE;?
     Route: 040
     Dates: start: 20161115, end: 20161115

REACTIONS (2)
  - Dyskinesia [None]
  - Drug ineffective [None]

NARRATIVE: CASE EVENT DATE: 20161115
